FAERS Safety Report 5090086-6 (Version None)
Quarter: 2006Q3

REPORT INFORMATION
  Report Type: 
  Country: None (occurrence: None)
  Receive Date: 20060828
  Receipt Date: 20060117
  Transmission Date: 20061208
  Serious: Yes (Other)
  Sender: FDA-Public Use
  Company Number: US-GLAXOSMITHKLINE-A0594383A

PATIENT
  Age: 19 Year
  Sex: Female

DRUGS (2)
  1. WELLBUTRIN XL [Suspect]
     Indication: DEPRESSION
     Route: 048
     Dates: end: 20060101
  2. NO CONCURRENT MEDICATION [Concomitant]

REACTIONS (2)
  - CONVULSION [None]
  - WEIGHT DECREASED [None]
